FAERS Safety Report 5485613-0 (Version None)
Quarter: 2007Q4

REPORT INFORMATION
  Report Type: 
  Country: None (occurrence: None)
  Receive Date: 20071011
  Receipt Date: 20071001
  Transmission Date: 20080405
  Serious: Yes (Other)
  Sender: FDA-Public Use
  Company Number: 20070250 /

PATIENT
  Age: 33 Year
  Sex: Female

DRUGS (3)
  1. VENOFER [Suspect]
     Dosage: 200 MG PER TWICE PER DAY INTRAVENOUS
     Route: 042
     Dates: start: 20070903, end: 20070905
  2. PENICILLIN G [Concomitant]
  3. METFORMIN HYDROCHLORIDE [Concomitant]

REACTIONS (3)
  - CATHETER SITE PAIN [None]
  - HAEMATOMA [None]
  - VENOUS THROMBOSIS LIMB [None]
